FAERS Safety Report 7622539-8 (Version None)
Quarter: 2011Q3

REPORT INFORMATION
  Report Type: 
  Country: None (occurrence: None)
  Receive Date: 20110719
  Receipt Date: 20110719
  Transmission Date: 20111222
  Serious: Yes (Other)
  Sender: FDA-Public Use
  Company Number: None

PATIENT
  Age: 39 Year
  Sex: Male
  Weight: 78.0187 kg

DRUGS (1)
  1. CYMBALTA [Suspect]
     Indication: DEPRESSION
     Dosage: 60 MG 1 A DAY PO
     Route: 048
     Dates: start: 20060210, end: 20110630

REACTIONS (6)
  - MEMORY IMPAIRMENT [None]
  - DRUG WITHDRAWAL SYNDROME [None]
  - HEADACHE [None]
  - ANXIETY [None]
  - PARAESTHESIA [None]
  - THINKING ABNORMAL [None]
